FAERS Safety Report 4887755-7 (Version None)
Quarter: 2006Q1

REPORT INFORMATION
  Report Type: 
  Country: None (occurrence: None)
  Receive Date: 20060123
  Receipt Date: 20060113
  Transmission Date: 20060701
  Serious: Yes (Other)
  Sender: FDA-Public Use
  Company Number: 2006AC00107

PATIENT
  Age: 68 Year
  Sex: Female

DRUGS (1)
  1. BUDESONIDE [Suspect]
     Route: 045

REACTIONS (2)
  - INTRAOCULAR PRESSURE INCREASED [None]
  - VISUAL FIELD DEFECT [None]
